FAERS Safety Report 9300811 (Version 1)
Quarter: 2013Q2

REPORT INFORMATION
  Report Type: Spontaneous
  Country: BR (occurrence: BR)
  Receive Date: 20130521
  Receipt Date: 20130521
  Transmission Date: 20140414
  Serious: Yes (Death, Other)
  Sender: FDA-Public Use
  Company Number: BR-PFIZER INC-2012229248

PATIENT
  Age: 60 Year
  Sex: Male
  Weight: 59 kg

DRUGS (5)
  1. SUTENT [Suspect]
     Indication: RENAL CELL CARCINOMA
     Dosage: 50 MG, 1X/DAY (1 TABLET), 4 WEEKS ON, 2 OFF (CYCLE 4 PER 2)
     Route: 048
     Dates: start: 20120828
  2. DIOVAN (VALSARTAN) [Concomitant]
     Dosage: 80 MG, 1X/DAY (1 TABLET)
  3. AMLODIPINE BESILATE [Concomitant]
     Dosage: 5 MG, 1X/DAY (1 TABLET)
  4. MORPHINE [Concomitant]
  5. DIPYRONE [Concomitant]

REACTIONS (6)
  - Death [Fatal]
  - Respiratory arrest [Unknown]
  - Yellow skin [Recovering/Resolving]
  - Disease progression [Not Recovered/Not Resolved]
  - Renal cell carcinoma [Not Recovered/Not Resolved]
  - Malaise [Unknown]
